FAERS Safety Report 4483726-3 (Version None)
Quarter: 2004Q4

REPORT INFORMATION
  Report Type: 
  Country: None (occurrence: None)
  Receive Date: 20041020
  Receipt Date: 20041027
  Transmission Date: 20050328
  Serious: Yes (Hospitalization)
  Sender: FDA-Public Use
  Company Number: 209505

PATIENT
  Age: 63 Year
  Sex: Female
  Weight: 73 kg

DRUGS (5)
  1. HERCEPTIN [Suspect]
     Indication: BREAST CANCER
     Dosage: 4 MG/KG, SINGLE, INTRAVENOUS; 146 MG, 1/WEEK, INTRAVENOUS
     Route: 042
     Dates: start: 20021124, end: 20031124
  2. HERCEPTIN [Suspect]
     Indication: BREAST CANCER
     Dosage: 4 MG/KG, SINGLE, INTRAVENOUS; 146 MG, 1/WEEK, INTRAVENOUS
     Route: 042
     Dates: end: 20040827
  3. CYCLOPHOSPHAMIDE [Suspect]
     Indication: BREAST CANCER
     Dosage: 600 MG/M2, Q3W, INTRAVENOUS
     Route: 042
     Dates: start: 20031124, end: 20040412
  4. DOXORUBICIN(DOXORUBICIN HYDROCHLORIDE, DOXORUBICIN) [Suspect]
     Indication: BREAST CANCER
     Dosage: 60 MG/M2, Q3W, INTRAVENOUS
     Route: 042
     Dates: start: 20031124, end: 20040412
  5. PACLITAXEL [Suspect]
     Indication: BREAST CANCER
     Dosage: 80 MG/M2, 1/WEEK, INTRAVENOUS
     Route: 042
     Dates: start: 20031124, end: 20040504

REACTIONS (4)
  - CARDIAC FAILURE CONGESTIVE [None]
  - CARDIOMYOPATHY [None]
  - NEUROPATHY [None]
  - VENTRICULAR ARRHYTHMIA [None]
